FAERS Safety Report 17125648 (Version 1)
Quarter: 2019Q4

REPORT INFORMATION
  Report Type: Spontaneous
  Country: DE (occurrence: DE)
  Receive Date: 20191208
  Receipt Date: 20191208
  Transmission Date: 20200122
  Serious: Yes (Death, Other)
  Sender: FDA-Public Use
  Company Number: NVSC2019DE059353

PATIENT
  Age: 54 Year
  Sex: Female

DRUGS (3)
  1. DOCETAXEL. [Suspect]
     Active Substance: DOCETAXEL
     Indication: PRODUCT USED FOR UNKNOWN INDICATION
     Dosage: UNK
     Route: 065
     Dates: start: 20170404, end: 20170502
  2. VARGATEF [Suspect]
     Active Substance: NINTEDANIB
     Indication: PRODUCT USED FOR UNKNOWN INDICATION
     Dosage: 400 MG, QD
     Route: 048
     Dates: start: 20170404
  3. VARGATEF [Suspect]
     Active Substance: NINTEDANIB
     Dosage: 200 MG, QD
     Route: 048
     Dates: start: 20170425, end: 20170502

REACTIONS (3)
  - Malignant neoplasm progression [Unknown]
  - Dehydration [Unknown]
  - Death [Fatal]

NARRATIVE: CASE EVENT DATE: 20170510
